FAERS Safety Report 5307684-4 (Version None)
Quarter: 2007Q2

REPORT INFORMATION
  Report Type: 
  Country: None (occurrence: None)
  Receive Date: 20070419
  Receipt Date: 20070402
  Transmission Date: 20071010
  Serious: Yes (Death)
  Sender: FDA-Public Use
  Company Number: 6031714

PATIENT
  Age: 30 Year
  Sex: Male

DRUGS (2)
  1. CITALOPRAM HYDROBROMIDE [Suspect]
     Indication: DRUG USE FOR UNKNOWN INDICATION
  2. DINITROPHENOL (DINITROPHENOL) [Suspect]
     Indication: DRUG USE FOR UNKNOWN INDICATION

REACTIONS (3)
  - MULTIPLE DRUG OVERDOSE [None]
  - PULMONARY OEDEMA [None]
  - VISCERAL CONGESTION [None]
